FAERS Safety Report 8871500 (Version 1)
Quarter: 2012Q4

REPORT INFORMATION
  Report Type: 
  Country: US (occurrence: US)
  Receive Date: 20121026
  Receipt Date: 20121026
  Transmission Date: 20130627
  Serious: No
  Sender: FDA-Public Use
  Company Number: US-AMGEN-USASP2012047993

PATIENT
  Age: 56 Year
  Sex: Male

DRUGS (10)
  1. ENBREL [Suspect]
     Indication: PRODUCT USED FOR UNKNOWN INDICATION
     Dosage: 25 mg, 2 times/wk
  2. CELEBREX [Concomitant]
     Dosage: 100 mg, UNK
  3. LISINOPRIL [Concomitant]
     Dosage: 10 mg, UNK
  4. ALBUTEROL                          /00139501/ [Concomitant]
     Dosage: 90 mug, UNK
  5. ADVAIR UNSPEC [Concomitant]
     Dosage: 250/50
  6. VITAMIN C                          /00008001/ [Concomitant]
     Dosage: 500 mg, UNK
  7. PRILOSEC                           /00661201/ [Concomitant]
     Dosage: 10 mg, UNK
  8. FISH OIL [Concomitant]
     Dosage: UNK
  9. VITAMIN D /00107901/ [Concomitant]
     Dosage: 1000 UNK, UNK
  10. COQ-10 [Concomitant]
     Dosage: 100 mg, UNK

REACTIONS (1)
  - Upper respiratory tract infection [Unknown]
